FAERS Safety Report 16917985 (Version 1)
Quarter: 2019Q4

REPORT INFORMATION
  Report Type: Spontaneous
  Country: US (occurrence: US)
  Receive Date: 20191015
  Receipt Date: 20191015
  Transmission Date: 20200122
  Serious: No
  Sender: FDA-Public Use
  Company Number: US-BAYER-2019-185834

PATIENT
  Sex: Male

DRUGS (3)
  1. COLACE [Concomitant]
     Active Substance: DOCUSATE SODIUM
  2. MIRALAX [Suspect]
     Active Substance: POLYETHYLENE GLYCOL 3350
     Dosage: UNK
     Route: 048
  3. TROSPIUM [Concomitant]
     Active Substance: TROSPIUM

REACTIONS (1)
  - Diarrhoea [Unknown]
